FAERS Safety Report 7934870-7 (Version None)
Quarter: 2011Q4

REPORT INFORMATION
  Report Type: 
  Country: None (occurrence: None)
  Receive Date: 20111122
  Receipt Date: 20111114
  Transmission Date: 20120403
  Serious: Yes (Other)
  Sender: FDA-Public Use
  Company Number: PHHY2011IS43177

PATIENT
  Sex: Male

DRUGS (1)
  1. RITALIN TAB [Suspect]
     Dosage: UNK UKN, UNK

REACTIONS (1)
  - INTENTIONAL DRUG MISUSE [None]
